FAERS Safety Report 11867365 (Version 1)
Quarter: 2015Q4

REPORT INFORMATION
  Report Type: Spontaneous
  Country: US (occurrence: US)
  Receive Date: 20151224
  Receipt Date: 20151224
  Transmission Date: 20160305
  Serious: Yes (Hospitalization)
  Sender: FDA-Public Use
  Company Number: US-INSYS THERAPEUTICS, INC-INS201512-000556

PATIENT
  Sex: Female
  Weight: 83.91 kg

DRUGS (5)
  1. SUBSYS [Suspect]
     Active Substance: FENTANYL
     Indication: METASTASES TO CENTRAL NERVOUS SYSTEM
     Dates: start: 201508
  2. SUBSYS [Suspect]
     Active Substance: FENTANYL
     Indication: LUNG NEOPLASM MALIGNANT
     Dates: start: 201508
  3. KEPPRA [Concomitant]
     Active Substance: LEVETIRACETAM
  4. ATIVAN [Concomitant]
     Active Substance: LORAZEPAM
     Indication: SLEEP DISORDER
  5. MORPHINE [Concomitant]
     Active Substance: MORPHINE

REACTIONS (2)
  - Product quality issue [Unknown]
  - Neoplasm progression [Not Recovered/Not Resolved]
